FAERS Safety Report 7423954-8 (Version None)
Quarter: 2011Q2

REPORT INFORMATION
  Report Type: 
  Country: None (occurrence: None)
  Receive Date: 20110419
  Receipt Date: 20110411
  Transmission Date: 20111010
  Serious: Yes (Death)
  Sender: FDA-Public Use
  Company Number: A0923272A

PATIENT
  Sex: Male

DRUGS (1)
  1. ALBUTEROL SULFATE AUTOHALER [Suspect]
     Route: 065

REACTIONS (2)
  - SEPSIS [None]
  - PNEUMONIA [None]
